FAERS Safety Report 5794240-7 (Version None)
Quarter: 2008Q2

REPORT INFORMATION
  Report Type: 
  Country: None (occurrence: None)
  Receive Date: 20080625
  Receipt Date: 20080616
  Transmission Date: 20081010
  Serious: Yes (Life-Threatening, Disabling, Other)
  Sender: FDA-Public Use
  Company Number: DSA_31657_2008

PATIENT
  Sex: Female
  Weight: 108.8633 kg

DRUGS (9)
  1. DILTIAZEM [Suspect]
     Indication: ATRIAL FIBRILLATION
     Dosage: ONE CAPSULE ONCE
     Dates: start: 20071217, end: 20071217
  2. DILTIAZEM HYDROCHLORIDE [Suspect]
     Indication: ATRIAL FIBRILLATION
     Dosage: 120 MG BID EVERY 12  HOURS
     Dates: start: 20060831, end: 20071216
  3. TAURINE [Concomitant]
  4. COUMADIN [Concomitant]
  5. VITAMIN B COMPLEX CAP [Concomitant]
  6. VITAMI C [Concomitant]
  7. NATURAL VITAMIN E [Concomitant]
  8. MSN WITH GLUCOSAMINE [Concomitant]
  9. CHONDROITIN [Concomitant]

REACTIONS (18)
  - ABASIA [None]
  - ABDOMINAL DISTENSION [None]
  - ARTHRALGIA [None]
  - ASTHENIA [None]
  - BACK PAIN [None]
  - BALANCE DISORDER [None]
  - DYSSTASIA [None]
  - FLATULENCE [None]
  - GAIT DISTURBANCE [None]
  - HEADACHE [None]
  - INCONTINENCE [None]
  - MUSCULAR WEAKNESS [None]
  - OEDEMA PERIPHERAL [None]
  - PAIN IN EXTREMITY [None]
  - PHARMACEUTICAL PRODUCT COMPLAINT [None]
  - THIRST [None]
  - TREMOR [None]
  - VISION BLURRED [None]
